FAERS Safety Report 7709488-1 (Version None)
Quarter: 2011Q3

REPORT INFORMATION
  Report Type: 
  Country: None (occurrence: None)
  Receive Date: 20110825
  Receipt Date: 20110803
  Transmission Date: 20111222
  Serious: Yes (Death)
  Sender: FDA-Public Use
  Company Number: JP-ROCHE-798446

PATIENT
  Age: 50 Year
  Sex: Female

DRUGS (2)
  1. HERCEPTIN [Suspect]
     Indication: BREAST CANCER
     Route: 041
  2. TAXOL [Concomitant]
     Route: 041

REACTIONS (3)
  - NAUSEA [None]
  - DISEASE PROGRESSION [None]
  - BONE MARROW FAILURE [None]
